FAERS Safety Report 4364533-9 (Version None)
Quarter: 2004Q2

REPORT INFORMATION
  Report Type: 
  Country: None (occurrence: None)
  Receive Date: 20040519
  Receipt Date: 20040426
  Transmission Date: 20050107
  Serious: No
  Sender: FDA-Public Use
  Company Number: PHFR2004GB01886

PATIENT
  Sex: 0

DRUGS (2)
  1. BACLOFEN [Suspect]
  2. DANTROLENE (DANTROLENE) [Concomitant]

REACTIONS (1)
  - ATRIOVENTRICULAR BLOCK [None]
